FAERS Safety Report 7320995-6 (Version None)
Quarter: 2011Q1

REPORT INFORMATION
  Report Type: 
  Country: None (occurrence: None)
  Receive Date: 20110228
  Receipt Date: 20110218
  Transmission Date: 20110831
  Serious: Yes (Other)
  Sender: FDA-Public Use
  Company Number: GB-JNJFOC-20110206512

PATIENT
  Age: 44 Year
  Sex: Female

DRUGS (2)
  1. RISPERDAL CONSTA [Suspect]
     Indication: SCHIZOID PERSONALITY DISORDER
     Route: 030
  2. QUETIAPINE [Interacting]
     Indication: SCHIZOID PERSONALITY DISORDER
     Route: 065

REACTIONS (9)
  - EATING DISORDER [None]
  - DRUG INTERACTION [None]
  - LIVER INJURY [None]
  - DEPRESSION [None]
  - HYPOTHALAMO-PITUITARY DISORDER [None]
  - MALAISE [None]
  - ACTIVITIES OF DAILY LIVING IMPAIRED [None]
  - SEPSIS [None]
  - BEDRIDDEN [None]
